FAERS Safety Report 7127993-6 (Version None)
Quarter: 2010Q4

REPORT INFORMATION
  Report Type: 
  Country: None (occurrence: None)
  Receive Date: 20101112
  Receipt Date: 20101029
  Transmission Date: 20110411
  Serious: Yes (Other)
  Sender: FDA-Public Use
  Company Number: 2010SP049793

PATIENT
  Age: 14 Year
  Sex: Female

DRUGS (4)
  1. ASMANEX TWISTHALER [Suspect]
     Indication: ASTHMA
     Dosage: 220 MCG
     Dates: start: 20100901
  2. NASONEX [Concomitant]
  3. ZYRTEC [Concomitant]
  4. ALBUTEROL [Concomitant]

REACTIONS (4)
  - DYSPNOEA [None]
  - RASH PAPULAR [None]
  - TACHYPNOEA [None]
  - URTICARIA [None]
